FAERS Safety Report 18199086 (Version 43)
Quarter: 2025Q1

REPORT INFORMATION
  Report Type: Report from Study
  Country: US (occurrence: US)
  Receive Date: 20200826
  Receipt Date: 20250311
  Transmission Date: 20250409
  Serious: Yes (Hospitalization, Other)
  Sender: TAKEDA
  Company Number: US-SHIRE-US202027679

PATIENT
  Age: 73 Year
  Sex: Female
  Weight: 87 kg

DRUGS (30)
  1. HUMAN IMMUNOGLOBULIN G [Suspect]
     Active Substance: HUMAN IMMUNOGLOBULIN G
     Indication: Immunodeficiency common variable
     Dosage: 42 GRAM, Q2WEEKS
     Dates: start: 20180209
  2. HUMAN IMMUNOGLOBULIN G [Suspect]
     Active Substance: HUMAN IMMUNOGLOBULIN G
     Dosage: 42 GRAM, Q2WEEKS
     Dates: start: 20180329
  3. HUMAN IMMUNOGLOBULIN G [Suspect]
     Active Substance: HUMAN IMMUNOGLOBULIN G
     Dosage: 40 GRAM, Q2WEEKS
  4. HUMAN IMMUNOGLOBULIN G [Suspect]
     Active Substance: HUMAN IMMUNOGLOBULIN G
     Dosage: 32 GRAM, Q2WEEKS
  5. DIPHENHYDRAMINE HYDROCHLORIDE [Concomitant]
     Active Substance: DIPHENHYDRAMINE HYDROCHLORIDE
  6. ASPIRIN [Concomitant]
     Active Substance: ASPIRIN
  7. EPINEPHRINE [Concomitant]
     Active Substance: EPINEPHRINE
  8. PROTONIX [Concomitant]
     Active Substance: PANTOPRAZOLE SODIUM
  9. ACETAMINOPHEN [Concomitant]
     Active Substance: ACETAMINOPHEN
  10. FLONASE ALLERGY RELIEF [Concomitant]
     Active Substance: FLUTICASONE PROPIONATE
  11. AZELASTINE HYDROCHLORIDE [Concomitant]
     Active Substance: AZELASTINE HYDROCHLORIDE
  12. METFORMIN HYDROCHLORIDE [Concomitant]
     Active Substance: METFORMIN HYDROCHLORIDE
  13. ALLEGRA-D [Concomitant]
     Active Substance: FEXOFENADINE HYDROCHLORIDE\PSEUDOEPHEDRINE HYDROCHLORIDE
  14. LOSARTAN [Concomitant]
     Active Substance: LOSARTAN
  15. OZEMPIC [Concomitant]
     Active Substance: SEMAGLUTIDE
  16. MAGNESIUM [Concomitant]
     Active Substance: MAGNESIUM
  17. PLAVIX [Concomitant]
     Active Substance: CLOPIDOGREL BISULFATE
  18. POTASSIUM CHLORIDE [Concomitant]
     Active Substance: POTASSIUM CHLORIDE
  19. LIDOCAINE [Concomitant]
     Active Substance: LIDOCAINE
  20. QNASL [Concomitant]
     Active Substance: BECLOMETHASONE DIPROPIONATE
  21. VITAMIN B COMPLEX [Concomitant]
     Active Substance: CYANOCOBALAMIN\DEXPANTHENOL\NIACINAMIDE\PYRIDOXINE HYDROCHLORIDE\RIBOFLAVIN 5^-PHOSPHATE SODIUM\THIA
  22. CHLORTHALIDONE [Concomitant]
     Active Substance: CHLORTHALIDONE
  23. CLARITHROMYCIN [Concomitant]
     Active Substance: CLARITHROMYCIN
  24. CALCIUM [Concomitant]
     Active Substance: CALCIUM
  25. VIIBRYD [Concomitant]
     Active Substance: VILAZODONE HYDROCHLORIDE
  26. ELIQUIS [Concomitant]
     Active Substance: APIXABAN
  27. VITAMIN D3 [Concomitant]
     Active Substance: CHOLECALCIFEROL
  28. VITAMIN E [Concomitant]
     Active Substance: .ALPHA.-TOCOPHEROL
  29. HYDROCHLOROTHIAZIDE\LOSARTAN [Concomitant]
     Active Substance: HYDROCHLOROTHIAZIDE\LOSARTAN
  30. CELEBREX [Concomitant]
     Active Substance: CELECOXIB

REACTIONS (45)
  - Abdominal adhesions [Unknown]
  - Food poisoning [Unknown]
  - Limb injury [Unknown]
  - Gastrointestinal disorder [Unknown]
  - Cardiac flutter [Unknown]
  - Infusion related reaction [Unknown]
  - Sinusitis [Recovered/Resolved]
  - Ear pruritus [Unknown]
  - Injection site exfoliation [Unknown]
  - Drug eruption [Unknown]
  - Dermatitis contact [Unknown]
  - Administration site pruritus [Unknown]
  - COVID-19 [Recovered/Resolved]
  - Allergic sinusitis [Unknown]
  - Illness [Unknown]
  - Cardiac disorder [Unknown]
  - Multiple allergies [Unknown]
  - Pharyngitis [Unknown]
  - Infection [Unknown]
  - Infusion site discharge [Unknown]
  - Seasonal allergy [Unknown]
  - Malabsorption from administration site [Unknown]
  - Skin disorder [Unknown]
  - Incorrect product administration duration [Unknown]
  - Inappropriate schedule of product administration [Unknown]
  - Throat irritation [Unknown]
  - Urinary tract infection [Unknown]
  - Skin mass [Unknown]
  - Sinus disorder [Unknown]
  - Drug hypersensitivity [Unknown]
  - Infusion site haemorrhage [Unknown]
  - Asthenia [Unknown]
  - Oropharyngeal pain [Unknown]
  - Hypersensitivity [Unknown]
  - Rash [Unknown]
  - Injection site pain [Unknown]
  - Infusion site bruising [Unknown]
  - Pyrexia [Unknown]
  - Infusion site swelling [Unknown]
  - Infusion site pruritus [Unknown]
  - Abdominal pain [Unknown]
  - Infusion site pain [Unknown]
  - Headache [Unknown]
  - Pruritus [Recovering/Resolving]
  - Rhinorrhoea [Unknown]

NARRATIVE: CASE EVENT DATE: 20201022
